FAERS Safety Report 9979209 (Version 1)
Quarter: 2014Q1

REPORT INFORMATION
  Report Type: Report from Study
  Country: US (occurrence: US)
  Receive Date: 20140306
  Receipt Date: 20140306
  Transmission Date: 20141002
  Serious: No
  Sender: FDA-Public Use
  Company Number: US-ABBVIE-13P-163-1169572-00

PATIENT
  Age: 35 Year
  Sex: Male

DRUGS (7)
  1. HUMIRA [Suspect]
     Indication: COLITIS ULCERATIVE
     Dates: start: 20130728
  2. HUMIRA [Suspect]
     Dates: start: 20131107
  3. PRAVASTATIN [Concomitant]
     Indication: BLOOD CHOLESTEROL
     Dosage: 80 MG DAILY
  4. PREDNISONE [Concomitant]
     Indication: COLITIS ULCERATIVE
     Dosage: 5 MG DAILY
  5. PREDNISONE [Concomitant]
     Dosage: 5 MG DAILY
  6. FISH OIL [Concomitant]
     Dosage: DAILY
  7. MULTIVITAMIN [Concomitant]
     Indication: PRODUCT USED FOR UNKNOWN INDICATION
     Dosage: DAILY

REACTIONS (1)
  - Gastrointestinal disorder [Recovering/Resolving]
